FAERS Safety Report 12424514 (Version 1)
Quarter: 2016Q2

REPORT INFORMATION
  Report Type: Spontaneous
  Country: US (occurrence: None)
  Receive Date: 20160531
  Receipt Date: 20160531
  Transmission Date: 20160815
  Serious: Yes (Hospitalization)
  Sender: FDA-Public Use
  Company Number: None

PATIENT
  Age: 60 Year
  Sex: Male
  Weight: 88.9 kg

DRUGS (1)
  1. NAFCILLINE, 2 GRAM [Suspect]
     Active Substance: NAFCILLIN\NAFCILLIN SODIUM
     Indication: LOCALISED INFECTION
     Dosage: 12 G CONTINUOUS INTRAVENOUS DRIP
     Route: 041
     Dates: start: 20160504, end: 20160517

REACTIONS (2)
  - Tubulointerstitial nephritis [None]
  - Acute kidney injury [None]

NARRATIVE: CASE EVENT DATE: 20160517
